FAERS Safety Report 17501403 (Version 1)
Quarter: 2020Q1

REPORT INFORMATION
  Report Type: Spontaneous
  Country: US (occurrence: US)
  Receive Date: 20200304
  Receipt Date: 20200304
  Transmission Date: 20200409
  Serious: Yes (Hospitalization)
  Sender: FDA-Public Use
  Company Number: None

PATIENT
  Age: 50 Year
  Sex: Female

DRUGS (1)
  1. ZEJULA [Suspect]
     Active Substance: NIRAPARIB
     Route: 048

REACTIONS (3)
  - Platelet count decreased [None]
  - Chest pain [None]
  - Contusion [None]

NARRATIVE: CASE EVENT DATE: 20200304
